FAERS Safety Report 5881841-0 (Version None)
Quarter: 2008Q3

REPORT INFORMATION
  Report Type: 
  Country: None (occurrence: None)
  Receive Date: 20080912
  Receipt Date: 20080708
  Transmission Date: 20090109
  Serious: No
  Sender: FDA-Public Use
  Company Number: US-ABBOTT-08P-163-0462849-00

PATIENT
  Sex: Female
  Weight: 70.37 kg

DRUGS (6)
  1. HUMIRA [Suspect]
     Indication: RHEUMATOID ARTHRITIS
     Route: 058
     Dates: start: 20080702
  2. ATENOLOL [Concomitant]
     Indication: BLOOD PRESSURE
     Route: 048
     Dates: end: 20080615
  3. ATENOLOL [Concomitant]
     Route: 048
     Dates: start: 20080615
  4. PREDNISONE TAB [Concomitant]
     Indication: TENDON PAIN
     Route: 048
     Dates: start: 20080703
  5. METOPROLOL TARTRATE [Concomitant]
     Indication: BLOOD PRESSURE
     Route: 048
     Dates: end: 20080615
  6. MAXZIDE [Concomitant]
     Indication: BLOOD PRESSURE
     Route: 048
     Dates: start: 19700101

REACTIONS (3)
  - BLOOD PRESSURE INCREASED [None]
  - INSOMNIA [None]
  - PALPITATIONS [None]
